FAERS Safety Report 6699231-X (Version None)
Quarter: 2010Q2

REPORT INFORMATION
  Report Type: 
  Country: None (occurrence: None)
  Receive Date: 20100427
  Receipt Date: 20100416
  Transmission Date: 20101027
  Serious: Yes (Other)
  Sender: FDA-Public Use
  Company Number: GB-PFIZER INC-2010048745

PATIENT
  Sex: Male

DRUGS (2)
  1. LYRICA [Suspect]
     Dosage: 50 MG, UNK
  2. LYRICA [Suspect]
     Dosage: 75 MG, UNK

REACTIONS (3)
  - DIZZINESS [None]
  - HYPOAESTHESIA [None]
  - PAIN [None]
